FAERS Safety Report 15004675 (Version 2)
Quarter: 2018Q3

REPORT INFORMATION
  Report Type: Spontaneous
  Country: SI (occurrence: SI)
  Receive Date: 20180613
  Receipt Date: 20180724
  Transmission Date: 20181010
  Serious: Yes (Other)
  Sender: FDA-Public Use
  Company Number: PHHY2018SI018682

PATIENT
  Sex: Female

DRUGS (1)
  1. EXTAVIA [Suspect]
     Active Substance: INTERFERON BETA-1B
     Indication: PRODUCT USED FOR UNKNOWN INDICATION
     Dosage: UNK
     Route: 065
     Dates: start: 2010, end: 2017

REACTIONS (27)
  - Urinary tract disorder [Unknown]
  - Vertigo [Unknown]
  - Lethargy [Unknown]
  - Irritability [Unknown]
  - Injection site mass [Unknown]
  - Hypoaesthesia [Unknown]
  - Febrile convulsion [Unknown]
  - Depressed mood [Unknown]
  - Crying [Unknown]
  - Dizziness [Unknown]
  - Fatigue [Unknown]
  - Paresis [Unknown]
  - Tremor [Unknown]
  - Urinary retention [Unknown]
  - General physical health deterioration [Unknown]
  - Muscle spasms [Unknown]
  - Extensor plantar response [Unknown]
  - Gouty arthritis [Unknown]
  - Central nervous system lesion [Unknown]
  - Memory impairment [Unknown]
  - Influenza like illness [Recovered/Resolved]
  - Pyrexia [Unknown]
  - Depressive symptom [Recovered/Resolved]
  - Disturbance in attention [Unknown]
  - Postural tremor [Unknown]
  - Neutralising antibodies [Unknown]
  - Gamma-glutamyltransferase increased [Unknown]

NARRATIVE: CASE EVENT DATE: 2010
